FAERS Safety Report 7543332-0 (Version None)
Quarter: 2011Q2

REPORT INFORMATION
  Report Type: 
  Country: None (occurrence: None)
  Receive Date: 20110524
  Receipt Date: 20110222
  Transmission Date: 20111010
  Serious: No
  Sender: FDA-Public Use
  Company Number: 022033

PATIENT
  Sex: Male

DRUGS (1)
  1. CIMZIA [Suspect]
     Indication: CROHN'S DISEASE
     Dosage: SUBCUTANEOUS
     Route: 058
     Dates: start: 20100101

REACTIONS (7)
  - RESPIRATORY TRACT CONGESTION [None]
  - NERVOUSNESS [None]
  - TREMOR [None]
  - NASOPHARYNGITIS [None]
  - COUGH [None]
  - RHINORRHOEA [None]
  - FLATULENCE [None]
